FAERS Safety Report 14048530 (Version 1)
Quarter: 2017Q4

REPORT INFORMATION
  Report Type: Spontaneous
  Country: FR (occurrence: FR)
  Receive Date: 20171005
  Receipt Date: 20171005
  Transmission Date: 20180321
  Serious: Yes (Other)
  Sender: FDA-Public Use
  Company Number: FR-BAYER-2017-186377

PATIENT
  Age: 63 Year
  Sex: Female

DRUGS (2)
  1. ASPIRINE PROTECT 100 MG [Suspect]
     Active Substance: ASPIRIN
     Dosage: DAILY DOSE 100 MG
     Dates: end: 201709
  2. ASPIRINE PROTECT 100 MG [Suspect]
     Active Substance: ASPIRIN
     Dosage: DAILY DOSE 100 MG

REACTIONS (2)
  - Glaucoma [None]
  - Intraocular pressure increased [None]

NARRATIVE: CASE EVENT DATE: 20170919
